FAERS Safety Report 23711196 (Version 1)
Quarter: 2024Q2

REPORT INFORMATION
  Report Type: Spontaneous
  Country: KR (occurrence: KR)
  Receive Date: 20240405
  Receipt Date: 20240405
  Transmission Date: 20240716
  Serious: No
  Sender: FDA-Public Use
  Company Number: KR-ALKEM LABORATORIES LIMITED-KR-ALKEM-2024-03685

PATIENT
  Age: 35 Year
  Sex: Male

DRUGS (3)
  1. SIROLIMUS [Suspect]
     Active Substance: SIROLIMUS
     Indication: Lymphangiectasia intestinal
     Dosage: 1 MILLIGRAM, QD
     Route: 048
  2. OCTREOTIDE [Concomitant]
     Active Substance: OCTREOTIDE\OCTREOTIDE ACETATE
     Indication: Lymphangiectasia intestinal
     Dosage: UNK (50-200 MICROGRAM DAILY OR TWICE DAILY)
     Route: 058
  3. TRANEXAMIC ACID [Concomitant]
     Active Substance: TRANEXAMIC ACID
     Indication: Lymphangiectasia intestinal
     Dosage: 250 MILLIGRAM, TID
     Route: 048

REACTIONS (1)
  - Device related infection [Unknown]
